FAERS Safety Report 15853406 (Version 2)
Quarter: 2019Q1

REPORT INFORMATION
  Report Type: Report from Study
  Country: US (occurrence: US)
  Receive Date: 20190122
  Receipt Date: 20190214
  Transmission Date: 20190417
  Serious: Yes (Other)
  Sender: FDA-Public Use
  Company Number: US-BRISTOL-MYERS SQUIBB COMPANY-BMS-2019-002824

PATIENT
  Age: 51 Year
  Weight: 170.2 kg

DRUGS (1)
  1. BELATACEPT [Suspect]
     Active Substance: BELATACEPT
     Indication: RENAL TRANSPLANT
     Dosage: UNK UNK, QMO
     Route: 042

REACTIONS (1)
  - Renal transplant failure [Unknown]

NARRATIVE: CASE EVENT DATE: 20180821
